FAERS Safety Report 25794989 (Version 1)
Quarter: 2025Q3

REPORT INFORMATION
  Report Type: Spontaneous
  Country: CN (occurrence: CN)
  Receive Date: 20250912
  Receipt Date: 20250912
  Transmission Date: 20251021
  Serious: Yes (Other)
  Sender: SANOFI AVENTIS
  Company Number: CN-SA-2025SA268832

PATIENT
  Age: 74 Year
  Sex: Female
  Weight: 59.5 kg

DRUGS (4)
  1. FABRAZYME [Suspect]
     Active Substance: AGALSIDASE BETA
     Indication: Rectal neoplasm
     Dosage: 300 MG, QD
     Route: 041
     Dates: start: 20250719, end: 20250719
  2. FLUOROURACIL [Suspect]
     Active Substance: FLUOROURACIL
     Indication: Rectal neoplasm
     Dosage: 3.74 G, QD
     Route: 042
     Dates: start: 20250719, end: 20250719
  3. SODIUM CHLORIDE [Concomitant]
     Active Substance: SODIUM CHLORIDE
     Indication: Rectal neoplasm
     Dosage: 90 ML, QD
     Route: 042
     Dates: start: 20250719, end: 20250719
  4. SODIUM CHLORIDE [Concomitant]
     Active Substance: SODIUM CHLORIDE
     Dosage: 100 ML, QD
     Route: 041
     Dates: start: 20250719, end: 20250719

REACTIONS (3)
  - White blood cell count decreased [Recovering/Resolving]
  - Neutrophil count decreased [Recovering/Resolving]
  - Product use in unapproved indication [Unknown]

NARRATIVE: CASE EVENT DATE: 20250719
